FAERS Safety Report 15051124 (Version 1)
Quarter: 2018Q2

REPORT INFORMATION
  Report Type: Spontaneous
  Country: SE (occurrence: SE)
  Receive Date: 20180622
  Receipt Date: 20180622
  Transmission Date: 20180711
  Serious: Yes (Other)
  Sender: FDA-Public Use
  Company Number: SE-SHIRE-SE201821735

PATIENT

DRUGS (8)
  1. ELVANSE [Suspect]
     Active Substance: LISDEXAMFETAMINE DIMESYLATE
     Indication: ATTENTION DEFICIT/HYPERACTIVITY DISORDER
     Dosage: 70 MG, UNK
     Route: 065
     Dates: start: 201705
  2. MELATONIN [Suspect]
     Active Substance: MELATONIN
     Indication: SLEEP DISORDER
     Dosage: DOSERING 3-6MG
     Route: 065
     Dates: start: 201710
  3. LAMOTRIGINE. [Suspect]
     Active Substance: LAMOTRIGINE
     Indication: MOOD ALTERED
     Dosage: 2X200MG
     Route: 065
     Dates: start: 201710
  4. VOLTAREN [Concomitant]
     Active Substance: DICLOFENAC SODIUM
     Indication: PRODUCT USED FOR UNKNOWN INDICATION
     Dates: start: 2016
  5. NORGESIC [Concomitant]
     Active Substance: ASPIRIN\CAFFEINE\ORPHENADRINE CITRATE
     Indication: PRODUCT USED FOR UNKNOWN INDICATION
  6. BRINTELLIX [Suspect]
     Active Substance: VORTIOXETINE HYDROBROMIDE
     Indication: DEPRESSION
     Route: 065
     Dates: start: 201805
  7. TREO [Concomitant]
     Active Substance: ASPIRIN\CAFFEINE
     Indication: PRODUCT USED FOR UNKNOWN INDICATION
     Dates: start: 1996
  8. OMEPRAZOLE. [Suspect]
     Active Substance: OMEPRAZOLE
     Indication: CHRONIC GASTRITIS
     Dosage: 20MG (40MG VID BEHOV)
     Route: 065
     Dates: start: 2003

REACTIONS (11)
  - Dry eye [Not Recovered/Not Resolved]
  - Dermatitis atopic [Not Recovered/Not Resolved]
  - Nausea [Not Recovered/Not Resolved]
  - Headache [Not Recovered/Not Resolved]
  - Vision blurred [Not Recovered/Not Resolved]
  - Dandruff [Not Recovered/Not Resolved]
  - Psoriasis [Not Recovered/Not Resolved]
  - Eczema [Not Recovered/Not Resolved]
  - Pruritus [Not Recovered/Not Resolved]
  - Neck pain [Not Recovered/Not Resolved]
  - Fatigue [Not Recovered/Not Resolved]

NARRATIVE: CASE EVENT DATE: 201804
